FAERS Safety Report 25924366 (Version 1)
Quarter: 2025Q4

REPORT INFORMATION
  Report Type: Spontaneous
  Country: EU (occurrence: EU)
  Receive Date: 20251015
  Receipt Date: 20251015
  Transmission Date: 20260118
  Serious: Yes (Hospitalization)
  Sender: ASTELLAS
  Company Number: EU-ASTELLAS-2025-AER-056943

PATIENT
  Age: 56 Year
  Sex: Male
  Weight: 53 kg

DRUGS (7)
  1. CRESEMBA [Suspect]
     Active Substance: ISAVUCONAZONIUM SULFATE
     Indication: Actinomycotic pulmonary infection
     Route: 048
     Dates: start: 20250309
  2. CERTICAN [Suspect]
     Active Substance: EVEROLIMUS
     Indication: Morphoea
     Route: 048
     Dates: start: 20240809, end: 202411
  3. CERTICAN [Suspect]
     Active Substance: EVEROLIMUS
     Route: 048
     Dates: start: 202412, end: 20250914
  4. RUXOLITINIB [Suspect]
     Active Substance: RUXOLITINIB
     Indication: Morphoea
     Route: 048
     Dates: start: 201904, end: 202203
  5. RUXOLITINIB [Suspect]
     Active Substance: RUXOLITINIB
     Route: 048
     Dates: start: 202209
  6. DULOXETINE HYDROCHLORIDE [Suspect]
     Active Substance: DULOXETINE HYDROCHLORIDE
     Indication: Pain
     Route: 048
     Dates: start: 20250630, end: 20250914
  7. DULOXETINE HYDROCHLORIDE [Suspect]
     Active Substance: DULOXETINE HYDROCHLORIDE
     Indication: Mixed anxiety and depressive disorder

REACTIONS (2)
  - Hypertension [Recovered/Resolved]
  - Off label use [Unknown]

NARRATIVE: CASE EVENT DATE: 20250309
